FAERS Safety Report 18997560 (Version 1)
Quarter: 2021Q1

REPORT INFORMATION
  Report Type: Spontaneous
  Country: US (occurrence: US)
  Receive Date: 20210311
  Receipt Date: 20210311
  Transmission Date: 20210420
  Serious: Yes (Other)
  Sender: FDA-Public Use
  Company Number: None

PATIENT
  Age: 33 Year
  Sex: Female
  Weight: 72 kg

DRUGS (5)
  1. GABAPENTIN. [Concomitant]
     Active Substance: GABAPENTIN
  2. DOTAREM [Suspect]
     Active Substance: GADOTERATE MEGLUMINE
     Indication: X-RAY WITH CONTRAST
     Dosage: ?          QUANTITY:15 ML;OTHER FREQUENCY:FOR EACH MRI;?
     Route: 042
     Dates: start: 20210127, end: 20210306
  3. ZOLPIDEM [Concomitant]
     Active Substance: ZOLPIDEM TARTRATE
  4. ADDERALL [Concomitant]
     Active Substance: AMPHETAMINE ASPARTATE\AMPHETAMINE SULFATE\DEXTROAMPHETAMINE SACCHARATE\DEXTROAMPHETAMINE SULFATE
  5. MULTIVITAMIN DAILY [Concomitant]

REACTIONS (8)
  - Eyelid rash [None]
  - Rash [None]
  - Paraesthesia [None]
  - Pain in extremity [None]
  - Neuropathy peripheral [None]
  - Hypoaesthesia [None]
  - Muscle twitching [None]
  - Neck pain [None]

NARRATIVE: CASE EVENT DATE: 20210201
